FAERS Safety Report 8531054-9 (Version None)
Quarter: 2012Q3

REPORT INFORMATION
  Report Type: 
  Country: None (occurrence: None)
  Receive Date: 20120723
  Receipt Date: 20120629
  Transmission Date: 20120928
  Serious: Yes (Other)
  Sender: FDA-Public Use
  Company Number: IE-009507513-1110GBR00048

PATIENT

DRUGS (2)
  1. INSULIN [Concomitant]
     Indication: TYPE 1 DIABETES MELLITUS
     Dosage: 4 DF, QID
     Dates: start: 20100101
  2. PROSCAR [Suspect]
     Indication: ALOPECIA
     Dosage: 5 MG, BID
     Route: 048
     Dates: start: 20070101, end: 20090101

REACTIONS (4)
  - OFF LABEL USE [None]
  - TYPE 1 DIABETES MELLITUS [None]
  - PANCREATITIS CHRONIC [None]
  - OVERDOSE [None]
